FAERS Safety Report 8549357-0 (Version None)
Quarter: 2012Q3

REPORT INFORMATION
  Report Type: 
  Country: None (occurrence: None)
  Receive Date: 20120720
  Receipt Date: 20120720
  Transmission Date: 20120928
  Serious: No
  Sender: FDA-Public Use
  Company Number: None

PATIENT
  Sex: Female
  Weight: 76.2043 kg

DRUGS (2)
  1. JANUVIA [Suspect]
     Dosage: 100 MG 1 X PER DAY PO
     Route: 048
     Dates: start: 20070101, end: 20101215
  2. ACTOS [Suspect]
     Indication: DIABETES MELLITUS
     Dosage: 45 MG 1 X PER DAY PO
     Route: 048
     Dates: start: 20050101, end: 20110930

REACTIONS (4)
  - INTESTINAL STENOSIS [None]
  - BLOOD COUNT ABNORMAL [None]
  - COLON CANCER STAGE III [None]
  - METASTASES TO LYMPH NODES [None]
